FAERS Safety Report 13280031 (Version 1)
Quarter: 2017Q1

REPORT INFORMATION
  Report Type: Spontaneous
  Country: US (occurrence: US)
  Receive Date: 20170228
  Receipt Date: 20170228
  Transmission Date: 20170428
  Serious: No
  Sender: FDA-Public Use
  Company Number: None

PATIENT
  Age: 61 Year
  Sex: Male
  Weight: 74.91 kg

DRUGS (2)
  1. CRESTOR [Suspect]
     Active Substance: ROSUVASTATIN CALCIUM
     Dates: start: 20120823, end: 20130306
  2. SIMVASTATIN 40MG [Suspect]
     Active Substance: SIMVASTATIN
     Dates: end: 20120814

REACTIONS (1)
  - Myalgia [None]
